FAERS Safety Report 21532302 (Version 1)
Quarter: 2022Q4

REPORT INFORMATION
  Report Type: Spontaneous
  Country: EG (occurrence: EG)
  Receive Date: 20221101
  Receipt Date: 20221101
  Transmission Date: 20230112
  Serious: Yes (Death, Hospitalization, Other)
  Sender: FDA-Public Use
  Company Number: EG-Hikma Pharmaceuticals USA Inc.-EG-H14001-22-02788

PATIENT
  Age: 79 Year
  Sex: Male
  Weight: 88 kg

DRUGS (3)
  1. DOCETAXEL [Suspect]
     Active Substance: DOCETAXEL
     Indication: Prostate cancer
     Route: 041
     Dates: start: 20210928, end: 20210928
  2. HOSTACORTIN [Concomitant]
     Indication: Prostate cancer
     Route: 048
  3. ZOLADEX [Concomitant]
     Active Substance: GOSERELIN ACETATE
     Indication: Prostate cancer
     Route: 058

REACTIONS (4)
  - Coma [Fatal]
  - Respiratory rate increased [Unknown]
  - Blood pressure decreased [Unknown]
  - Heart rate increased [Unknown]

NARRATIVE: CASE EVENT DATE: 20211005
